FAERS Safety Report 6252734-4 (Version None)
Quarter: 2009Q2

REPORT INFORMATION
  Report Type: 
  Country: None (occurrence: None)
  Receive Date: 20090629
  Receipt Date: 20090629
  Transmission Date: 20091009
  Serious: Yes (Hospitalization)
  Sender: FDA-Public Use
  Company Number: None

PATIENT
  Sex: Male
  Weight: 32.92 kg

DRUGS (4)
  1. MERCAPTOPURINE [Suspect]
     Dosage: 3300 MG
  2. METHOTREXATE [Suspect]
     Dosage: 112 MG
  3. VINCRISTINE SULFATE [Suspect]
     Dosage: 3.2 MG
  4. DEXAMETHASONE [Suspect]
     Dosage: 60 MG

REACTIONS (19)
  - APNOEIC ATTACK [None]
  - CARDIO-RESPIRATORY ARREST [None]
  - CONVULSION [None]
  - ELECTROCARDIOGRAM QRS COMPLEX PROLONGED [None]
  - ELECTROMECHANICAL DISSOCIATION [None]
  - HEPATITIS [None]
  - HYPERKALAEMIA [None]
  - HYPOXIA [None]
  - LACTIC ACIDOSIS [None]
  - LOBAR PNEUMONIA [None]
  - LOSS OF CONSCIOUSNESS [None]
  - METABOLIC ACIDOSIS [None]
  - PANCYTOPENIA [None]
  - PLEURAL EFFUSION [None]
  - PULMONARY OEDEMA [None]
  - PYREXIA [None]
  - RESPIRATORY ACIDOSIS [None]
  - RESPIRATORY DISTRESS [None]
  - VENTRICULAR TACHYCARDIA [None]
